FAERS Safety Report 6212283-6 (Version None)
Quarter: 2009Q2

REPORT INFORMATION
  Report Type: 
  Country: None (occurrence: None)
  Receive Date: 20090529
  Receipt Date: 20090519
  Transmission Date: 20091009
  Serious: Yes (Hospitalization)
  Sender: FDA-Public Use
  Company Number: CHPA2009US12175

PATIENT
  Age: 47 Year
  Sex: Female
  Weight: 69 kg

DRUGS (8)
  1. NICOTINE [Suspect]
     Indication: SMOKING CESSATION THERAPY
     Dosage: 21 MG, QD, TRANSDERMAL
     Route: 062
  2. ETOMIDATE [Concomitant]
  3. FENTANYL-100 [Concomitant]
  4. MIDAZOLAM HCL [Concomitant]
  5. VECURONIUM BROMIDE [Concomitant]
  6. LIDOCAINE [Concomitant]
  7. NITROUS OXIDE (NITROUS OXIDE), 70 % [Concomitant]
  8. ISOFLURANE (ISOFLURANE), 0.8-1.2 % [Concomitant]

REACTIONS (2)
  - ARTERIOSPASM CORONARY [None]
  - ECG SIGNS OF MYOCARDIAL ISCHAEMIA [None]
